FAERS Safety Report 13300681 (Version 1)
Quarter: 2017Q1

REPORT INFORMATION
  Report Type: Spontaneous
  Country: CA (occurrence: CA)
  Receive Date: 20170307
  Receipt Date: 20170307
  Transmission Date: 20170428
  Serious: Yes (Other)
  Sender: FDA-Public Use
  Company Number: CA-TEVA-747180ACC

PATIENT
  Age: 71 Year
  Sex: Female
  Weight: 74.91 kg

DRUGS (2)
  1. TRAZODONE [Suspect]
     Active Substance: TRAZODONE HYDROCHLORIDE
     Indication: INSOMNIA
     Dosage: 50 MILLIGRAM DAILY;
     Route: 048
  2. TRAZODONE [Suspect]
     Active Substance: TRAZODONE HYDROCHLORIDE
     Dosage: 25 MILLIGRAM DAILY;
     Route: 048

REACTIONS (5)
  - Burning sensation [Recovering/Resolving]
  - Contusion [Recovering/Resolving]
  - Suicidal ideation [Recovering/Resolving]
  - Oedema peripheral [Recovering/Resolving]
  - Petechiae [Recovering/Resolving]
